APPROVED DRUG PRODUCT: LEVONORGESTREL AND ETHINYL ESTRADIOL
Active Ingredient: ETHINYL ESTRADIOL; LEVONORGESTREL
Strength: 0.02MG;0.09MG
Dosage Form/Route: TABLET;ORAL
Application: A079218 | Product #001 | TE Code: AB
Applicant: WATSON LABORATORIES INC
Approved: Jun 6, 2011 | RLD: No | RS: Yes | Type: RX